FAERS Safety Report 17939349 (Version 1)
Quarter: 2020Q2

REPORT INFORMATION
  Report Type: Spontaneous
  Country: US (occurrence: US)
  Receive Date: 20200624
  Receipt Date: 20200624
  Transmission Date: 20200714
  Serious: Yes (Other)
  Sender: FDA-Public Use
  Company Number: US-JNJFOC-20200626153

PATIENT
  Age: 71 Year
  Sex: Male

DRUGS (1)
  1. ERDAFITINIB. [Suspect]
     Active Substance: ERDAFITINIB
     Indication: TRANSITIONAL CELL CARCINOMA
     Route: 065

REACTIONS (6)
  - Paronychia [Recovering/Resolving]
  - Rash macular [Recovering/Resolving]
  - Superinfection [Recovering/Resolving]
  - Trichomegaly [Unknown]
  - Hypertrichosis [Unknown]
  - Onycholysis [Recovering/Resolving]
